FAERS Safety Report 4999551-0 (Version None)
Quarter: 2006Q2

REPORT INFORMATION
  Report Type: 
  Country: None (occurrence: None)
  Receive Date: 20060511
  Receipt Date: 20050414
  Transmission Date: 20061013
  Serious: Yes (Hospitalization, Disabling)
  Sender: FDA-Public Use
  Company Number: US-MERCK-0504USA02582

PATIENT
  Age: 50 Year
  Sex: Female

DRUGS (5)
  1. VIOXX [Suspect]
     Indication: JOINT SPRAIN
     Route: 048
     Dates: start: 20010301, end: 20010901
  2. LIPITOR [Concomitant]
     Route: 065
  3. RHINOCORT [Concomitant]
     Route: 065
  4. PREMARIN [Concomitant]
     Route: 065
  5. AH-CHEW [Concomitant]
     Route: 065

REACTIONS (4)
  - ARTHROPOD BITE [None]
  - COLITIS ISCHAEMIC [None]
  - FACIAL BONES FRACTURE [None]
  - SPINAL DISORDER [None]
